FAERS Safety Report 6729970-3 (Version None)
Quarter: 2010Q2

REPORT INFORMATION
  Report Type: 
  Country: None (occurrence: None)
  Receive Date: 20100518
  Receipt Date: 20100506
  Transmission Date: 20101027
  Serious: Yes (Hospitalization)
  Sender: FDA-Public Use
  Company Number: NL-SANOFI-AVENTIS-2010SA026417

PATIENT
  Age: 75 Year
  Sex: Female

DRUGS (16)
  1. ARAVA [Suspect]
     Indication: RHEUMATOID ARTHRITIS
     Dates: start: 20090501, end: 20090701
  2. ARAVA [Suspect]
     Dates: start: 20090701, end: 20091101
  3. PARACETAMOL [Concomitant]
  4. PREDNISONE [Concomitant]
  5. NAPROXEN [Concomitant]
  6. THYRAX [Concomitant]
  7. LIPITOR [Concomitant]
  8. IRBESARTAN AND HYDROCHLOROTHIAZIDE [Concomitant]
  9. ASASANTIN [Concomitant]
  10. OMEPRAZOLE [Concomitant]
  11. MACROGOL 4000 [Concomitant]
  12. OXYCONTIN [Concomitant]
  13. TEMAZEPAM [Concomitant]
  14. SPIRONOLACTONE [Concomitant]
  15. CALCICHEW [Concomitant]
  16. LANTUS [Concomitant]

REACTIONS (1)
  - SKIN ULCER [None]
